FAERS Safety Report 13131895 (Version 2)
Quarter: 2017Q1

REPORT INFORMATION
  Report Type: Report from Study
  Country: US (occurrence: US)
  Receive Date: 20170119
  Receipt Date: 20170202
  Transmission Date: 20170428
  Serious: Yes (Other)
  Sender: FDA-Public Use
  Company Number: US-SAOL THERAPEUTICS-2017SAO00096

PATIENT
  Age: 35 Year
  Sex: Female

DRUGS (6)
  1. COMPOUNDED BACLOFEN [Suspect]
     Active Substance: BACLOFEN
     Dosage: 447.9 ?G, \DAY
     Route: 037
     Dates: start: 20161116, end: 20161201
  2. COMPOUNDED BACLOFEN [Suspect]
     Active Substance: BACLOFEN
     Dosage: 793.4 ?G, \DAY
     Route: 037
     Dates: start: 20161201
  3. COMPOUNDED BACLOFEN [Suspect]
     Active Substance: BACLOFEN
     Dosage: 150.2 ?G, \DAY
     Route: 037
     Dates: start: 20161202
  4. COMPOUNDED BACLOFEN [Suspect]
     Active Substance: BACLOFEN
     Dosage: 447.9 ?G, \DAY
     Dates: start: 20161202
  5. COMPOUNDED BACLOFEN [Suspect]
     Active Substance: BACLOFEN
     Dosage: 150.2 ?G, \DAY
     Route: 037
     Dates: start: 20161116, end: 20161201
  6. COMPOUNDED BACLOFEN [Suspect]
     Active Substance: BACLOFEN
     Dosage: 500.1 ?G, \DAY
     Route: 037
     Dates: start: 20161201

REACTIONS (5)
  - Musculoskeletal stiffness [Unknown]
  - Implant site extravasation [Unknown]
  - Mobility decreased [Unknown]
  - Arachnoiditis [Unknown]
  - Hypotonia [Unknown]

NARRATIVE: CASE EVENT DATE: 20161201
